FAERS Safety Report 23361058 (Version 2)
Quarter: 2024Q1

REPORT INFORMATION
  Report Type: Spontaneous
  Country: CR (occurrence: CR)
  Receive Date: 20240103
  Receipt Date: 20240212
  Transmission Date: 20240410
  Serious: No
  Sender: FDA-Public Use
  Company Number: CR-PFIZER INC-PV202300201253

PATIENT

DRUGS (1)
  1. GENOTROPIN [Suspect]
     Active Substance: SOMATROPIN
     Dosage: UNK, DAILY

REACTIONS (2)
  - Wrong technique in device usage process [Unknown]
  - Device failure [Unknown]

NARRATIVE: CASE EVENT DATE: 20231206
